FAERS Safety Report 7637393-8 (Version None)
Quarter: 2011Q3

REPORT INFORMATION
  Report Type: 
  Country: None (occurrence: None)
  Receive Date: 20110726
  Receipt Date: 20110721
  Transmission Date: 20111222
  Serious: No
  Sender: FDA-Public Use
  Company Number: US-PFIZER INC-2011147573

PATIENT
  Sex: Female
  Weight: 43.537 kg

DRUGS (2)
  1. ADVIL [Suspect]
     Indication: MUSCLE SPASMS
     Dosage: 200 MG, UNK
     Dates: end: 20110101
  2. TYLENOL-500 [Concomitant]
     Indication: MUSCLE SPASMS
     Dosage: UNK

REACTIONS (1)
  - EYE SWELLING [None]
